FAERS Safety Report 4698233-2 (Version None)
Quarter: 2005Q2

REPORT INFORMATION
  Report Type: 
  Country: None (occurrence: None)
  Receive Date: 20050623
  Receipt Date: 20050613
  Transmission Date: 20051028
  Serious: Yes (Other)
  Sender: FDA-Public Use
  Company Number: GB-BRISTOL-MYERS SQUIBB COMPANY-13002837

PATIENT
  Age: 40 Year
  Sex: Male

DRUGS (2)
  1. ABILIFY [Suspect]
     Dosage: INCREASED TO 10 MG/DAY.
     Route: 048
     Dates: start: 20050201
  2. VALPROATE SODIUM [Concomitant]

REACTIONS (6)
  - AGITATION [None]
  - CONVULSION [None]
  - EXCITABILITY [None]
  - INSOMNIA [None]
  - SEDATION [None]
  - WEIGHT DECREASED [None]
